FAERS Safety Report 19410578 (Version 1)
Quarter: 2021Q2

REPORT INFORMATION
  Report Type: Spontaneous
  Country: US (occurrence: US)
  Receive Date: 20210611
  Receipt Date: 20210611
  Transmission Date: 20210717
  Serious: Yes (Death)
  Sender: FDA-Public Use
  Company Number: None

PATIENT
  Age: 74 Year
  Sex: Male

DRUGS (1)
  1. POMALYST [Suspect]
     Active Substance: POMALIDOMIDE
     Indication: PLASMA CELL MYELOMA
     Route: 048
     Dates: start: 20200623, end: 20210115

REACTIONS (3)
  - Cerebral haemorrhage [None]
  - SARS-CoV-2 test positive [None]
  - Loss of consciousness [None]

NARRATIVE: CASE EVENT DATE: 20210115
